FAERS Safety Report 25581343 (Version 1)
Quarter: 2025Q3

REPORT INFORMATION
  Report Type: Spontaneous
  Country: US (occurrence: US)
  Receive Date: 20250718
  Receipt Date: 20250718
  Transmission Date: 20251021
  Serious: Yes (Other)
  Sender: AMGEN
  Company Number: US-AMGEN-USASP2025139264

PATIENT
  Age: 56 Year
  Sex: Male

DRUGS (1)
  1. TEPEZZA [Suspect]
     Active Substance: TEPROTUMUMAB-TRBW
     Indication: Product used for unknown indication
     Route: 040

REACTIONS (6)
  - Psoriatic arthropathy [Unknown]
  - Diplopia [Unknown]
  - Altered visual depth perception [Unknown]
  - Lacrimation increased [Unknown]
  - Urinary tract infection [Unknown]
  - Headache [Recovered/Resolved]
